FAERS Safety Report 11812265 (Version 1)
Quarter: 2015Q4

REPORT INFORMATION
  Report Type: Not Available
  Country: US (occurrence: US)
  Receive Date: 20151208
  Receipt Date: 20151208
  Transmission Date: 20160305
  Serious: Yes (Other)
  Sender: FDA-Public Use
  Company Number: US-ANIPHARMA-2015-US-000654

PATIENT
  Age: 84 Year
  Sex: Female

DRUGS (2)
  1. VANCOCIN [Suspect]
     Active Substance: VANCOMYCIN HYDROCHLORIDE
  2. MEROPENEM. [Suspect]
     Active Substance: MEROPENEM

REACTIONS (1)
  - Linear IgA disease [Unknown]
